FAERS Safety Report 15600799 (Version 2)
Quarter: 2019Q1

REPORT INFORMATION
  Report Type: Report from Study
  Country: FR (occurrence: FR)
  Receive Date: 20181109
  Receipt Date: 20190110
  Transmission Date: 20190417
  Serious: Yes (Other)
  Sender: FDA-Public Use
  Company Number: FR-TEVA-2018-FR-973943

PATIENT
  Age: 7 Decade
  Sex: Male

DRUGS (3)
  1. CHLORAMINOPHENE [Concomitant]
     Active Substance: CHLORAMBUCIL
     Indication: NON-HODGKIN^S LYMPHOMA
  2. RAMIPRIL. [Suspect]
     Active Substance: RAMIPRIL
     Dosage: INTRODUCED TWO YEARS BEFORE
     Route: 065
  3. RITUXIMAB. [Concomitant]
     Active Substance: RITUXIMAB
     Indication: NON-HODGKIN^S LYMPHOMA

REACTIONS (2)
  - Angioedema [Unknown]
  - Acquired C1 inhibitor deficiency [Unknown]
